FAERS Safety Report 10404032 (Version 1)
Quarter: 2014Q3

REPORT INFORMATION
  Report Type: Spontaneous
  Country: US (occurrence: US)
  Receive Date: 20140822
  Receipt Date: 20140822
  Transmission Date: 20150326
  Serious: Yes (Life-Threatening, Hospitalization)
  Sender: FDA-Public Use
  Company Number: US-ASTRAZENECA-2014SE61602

PATIENT
  Age: 65 Year
  Sex: Male

DRUGS (8)
  1. AMLODIPINE [Concomitant]
     Active Substance: AMLODIPINE BESYLATE
  2. PRAVASTATIN [Concomitant]
     Active Substance: PRAVASTATIN\PRAVASTATIN SODIUM
  3. VITAMIN D [Concomitant]
     Active Substance: CHOLECALCIFEROL
  4. LISINOPRIL. [Concomitant]
     Active Substance: LISINOPRIL
  5. OMEPRAZOLE. [Suspect]
     Active Substance: OMEPRAZOLE
     Indication: GASTROOESOPHAGEAL REFLUX DISEASE
     Route: 048
  6. ESOMEPRAZOLE [Suspect]
     Active Substance: ESOMEPRAZOLE
     Indication: GASTROOESOPHAGEAL REFLUX PROPHYLAXIS
     Route: 048
  7. METFORMIN [Concomitant]
     Active Substance: METFORMIN HYDROCHLORIDE
  8. ASPIRIN. [Concomitant]
     Active Substance: ASPIRIN

REACTIONS (14)
  - Hypocalcaemia [Recovered/Resolved]
  - Bundle branch block right [Recovered/Resolved]
  - Hypophosphataemia [Recovered/Resolved]
  - Pneumonia aspiration [Recovered/Resolved]
  - Hypoparathyroidism secondary [Recovered/Resolved]
  - Convulsion [Recovered/Resolved]
  - Rhabdomyolysis [Recovered/Resolved]
  - Electrocardiogram QT prolonged [Recovered/Resolved]
  - Agitation [Recovered/Resolved]
  - Renal failure [Recovered/Resolved]
  - Hypomagnesaemia [Recovered/Resolved]
  - Lactic acidosis [Recovered/Resolved]
  - Sinus tachycardia [Recovered/Resolved]
  - Hypopnoea [Recovered/Resolved]
